FAERS Safety Report 4845801-0 (Version None)
Quarter: 2005Q4

REPORT INFORMATION
  Report Type: 
  Country: None (occurrence: None)
  Receive Date: 20051202
  Receipt Date: 20051202
  Transmission Date: 20060501
  Serious: Yes (Life-Threatening)
  Sender: FDA-Public Use
  Company Number: None

PATIENT
  Age: 32 Year
  Sex: Female
  Weight: 53.7 kg

DRUGS (3)
  1. EMTRICITABINE [Suspect]
     Indication: HIV INFECTION
     Dosage: 200 MG PO QD
     Route: 048
     Dates: start: 20050627, end: 20051116
  2. ATAZANAVIR [Suspect]
     Indication: HIV INFECTION
     Dosage: 400 MG PO QD
     Route: 048
     Dates: start: 20050627, end: 20051116
  3. DIDANOSINE [Suspect]
     Indication: HIV INFECTION
     Dosage: 250 MG PO QD
     Route: 048
     Dates: start: 20050627, end: 20051116

REACTIONS (7)
  - ABDOMINAL PAIN [None]
  - ABORTION SPONTANEOUS [None]
  - BLOOD HIV RNA INCREASED [None]
  - DRUG EXPOSURE DURING PREGNANCY [None]
  - PREGNANCY [None]
  - ULTRASOUND SCAN ABNORMAL [None]
  - VAGINAL HAEMORRHAGE [None]
